FAERS Safety Report 5324180-9 (Version None)
Quarter: 2007Q2

REPORT INFORMATION
  Report Type: 
  Country: None (occurrence: None)
  Receive Date: 20070514
  Receipt Date: 20070502
  Transmission Date: 20071010
  Serious: Yes (Other)
  Sender: FDA-Public Use
  Company Number: CA-SANOFI-SYNTHELABO-A01200704569

PATIENT
  Age: 56 Year
  Sex: Male

DRUGS (9)
  1. ATORVASTATIN CALCIUM [Concomitant]
     Indication: ACUTE CORONARY SYNDROME
     Route: 065
     Dates: start: 20061111
  2. RAMIPRIL [Concomitant]
     Indication: ACUTE CORONARY SYNDROME
     Route: 065
     Dates: start: 20061111
  3. METOPROLOL SUCCINATE [Concomitant]
     Indication: ACUTE CORONARY SYNDROME
     Route: 065
     Dates: start: 20061111
  4. PLAVIX [Suspect]
     Indication: ANGIOGRAM
     Route: 048
     Dates: start: 20061111, end: 20070429
  5. PLAVIX [Suspect]
     Indication: STENT PLACEMENT
     Route: 048
     Dates: start: 20061111, end: 20070429
  6. PLAVIX [Suspect]
     Indication: ACUTE CORONARY SYNDROME
     Route: 048
     Dates: start: 20061111, end: 20070429
  7. ASPIRIN [Concomitant]
     Indication: ANGIOGRAM
     Route: 065
     Dates: start: 20061111, end: 20070429
  8. ASPIRIN [Concomitant]
     Indication: STENT PLACEMENT
     Route: 065
     Dates: start: 20061111, end: 20070429
  9. ASPIRIN [Concomitant]
     Indication: ACUTE CORONARY SYNDROME
     Route: 065
     Dates: start: 20061111, end: 20070429

REACTIONS (5)
  - DIZZINESS [None]
  - EROSIVE DUODENITIS [None]
  - EROSIVE OESOPHAGITIS [None]
  - GASTROINTESTINAL HAEMORRHAGE [None]
  - MALAISE [None]
